FAERS Safety Report 9271113 (Version 2)
Quarter: 2013Q3

REPORT INFORMATION
  Report Type: Report from Study
  Country: US (occurrence: US)
  Receive Date: 20130506
  Receipt Date: 20130701
  Transmission Date: 20140515
  Serious: Yes (Hospitalization)
  Sender: FDA-Public Use
  Company Number: PHEH2013US009573

PATIENT
  Sex: Male

DRUGS (15)
  1. GLEEVEC [Suspect]
     Indication: CHRONIC MYELOID LEUKAEMIA
     Dosage: 400 MG, DAILY
     Route: 048
     Dates: start: 20091223
  2. GLEEVEC [Suspect]
     Dosage: 400 MG, DAILY
     Route: 048
     Dates: start: 20091223
  3. JANUVIA [Concomitant]
  4. RESTASIS [Concomitant]
  5. LEVETIRACETAM [Concomitant]
  6. FUROSEMIDE [Concomitant]
  7. CARVEDILOL [Concomitant]
  8. AMLODIPINE BENAZEPRIL [Concomitant]
  9. CLONIDINE [Concomitant]
  10. PHENYTOIN SODIUM EXTENDED [Concomitant]
  11. ALBUTEROL [Concomitant]
  12. ACIDOPHILUS [Concomitant]
  13. PHENERGAN                          /00404701/ [Concomitant]
  14. COZAAR [Concomitant]
  15. ZOLOFT [Concomitant]

REACTIONS (3)
  - Apnoea [Unknown]
  - Diabetes mellitus [Unknown]
  - Convulsion [Unknown]
